FAERS Safety Report 20108772 (Version 1)
Quarter: 2021Q4

REPORT INFORMATION
  Report Type: Spontaneous
  Country: US (occurrence: None)
  Receive Date: 20211124
  Receipt Date: 20211124
  Transmission Date: 20220303
  Serious: Yes (Hospitalization)
  Sender: FDA-Public Use
  Company Number: None

PATIENT
  Sex: Female

DRUGS (7)
  1. XALKORI [Suspect]
     Active Substance: CRIZOTINIB
     Indication: Malignant respiratory tract neoplasm
     Route: 048
     Dates: start: 20151208
  2. AMITIZA [Concomitant]
     Active Substance: LUBIPROSTONE
  3. HUMALOG [Concomitant]
     Active Substance: INSULIN LISPRO
  4. LANSOPRAZOLE [Concomitant]
     Active Substance: LANSOPRAZOLE
  5. LANTUS [Concomitant]
     Active Substance: INSULIN GLARGINE
  6. LINZESS [Concomitant]
     Active Substance: LINACLOTIDE
  7. MULTIVITAMIN TAB WOMENS [Concomitant]

REACTIONS (1)
  - Intentional dose omission [None]
